FAERS Safety Report 12756321 (Version 1)
Quarter: 2016Q3

REPORT INFORMATION
  Report Type: Spontaneous
  Country: US (occurrence: CA)
  Receive Date: 20160916
  Receipt Date: 20160916
  Transmission Date: 20161109
  Serious: Yes (Other)
  Sender: FDA-Public Use
  Company Number: CA-TEVA-693658USA

PATIENT
  Age: 28 Year
  Sex: Female
  Weight: 60.38 kg

DRUGS (1)
  1. PLAN B [Suspect]
     Active Substance: LEVONORGESTREL
     Route: 048
     Dates: start: 20160831, end: 20160831

REACTIONS (3)
  - Vulvovaginal pruritus [Not Recovered/Not Resolved]
  - Haemorrhage [Not Recovered/Not Resolved]
  - Vulvovaginal burning sensation [Unknown]
